FAERS Safety Report 10404148 (Version 1)
Quarter: 2014Q1

REPORT INFORMATION
  Report Type: Spontaneous
  Country: US (occurrence: None)
  Receive Date: 20130927
  Receipt Date: 20130927
  Transmission Date: 20141002
  Serious: Yes (Other)
  Sender: FDA-Public Use
  Company Number: RB-54354-2013

PATIENT
  Age: 48 Year
  Sex: Male

DRUGS (6)
  1. SUBOXONE [Suspect]
     Indication: PAIN
     Route: 060
     Dates: start: 20130411, end: 20130514
  2. SUBOXONE [Suspect]
     Indication: DRUG DEPENDENCE
     Route: 060
     Dates: start: 20130411, end: 20130514
  3. XANAX (NOT SPECIFIED) [Suspect]
     Indication: GENERALISED ANXIETY DISORDER
     Dosage: UNKNOWN TAPERED DOSES ORAL
     Route: 048
     Dates: start: 201305
  4. ZOLOFT [Concomitant]
  5. CYCLOVIR [Concomitant]
  6. MULTIVITAMIN [Concomitant]

REACTIONS (9)
  - Confusional state [None]
  - Headache [None]
  - Vision blurred [None]
  - Coordination abnormal [None]
  - Pseudologia [None]
  - Abnormal dreams [None]
  - Night sweats [None]
  - Chest discomfort [None]
  - Wrong technique in drug usage process [None]
